FAERS Safety Report 9074996 (Version 1)
Quarter: 2013Q1

REPORT INFORMATION
  Report Type: Report from Study
  Country: US (occurrence: US)
  Receive Date: 20130129
  Receipt Date: 20130129
  Transmission Date: 20140127
  Serious: No
  Sender: FDA-Public Use
  Company Number: US-ABBOTT-12P-163-0923562-00

PATIENT
  Age: 12 Year
  Sex: Male

DRUGS (4)
  1. HUMIRA 40 MG/0.8 ML PEN [Suspect]
     Indication: CROHN^S DISEASE
     Dates: start: 20120322, end: 20120322
  2. HUMIRA 40 MG/0.8 ML PEN [Suspect]
     Dates: start: 20120405
  3. HUMIRA 40 MG/0.8 ML PEN [Suspect]
  4. BENTYL [Concomitant]
     Indication: ABDOMINAL PAIN
     Dosage: PRN

REACTIONS (1)
  - Off label use [Recovering/Resolving]
